FAERS Safety Report 4355167-0 (Version None)
Quarter: 2004Q2

REPORT INFORMATION
  Report Type: 
  Country: None (occurrence: None)
  Receive Date: 20040504
  Receipt Date: 20040419
  Transmission Date: 20050107
  Serious: Yes (Hospitalization)
  Sender: FDA-Public Use
  Company Number: TPA2004A00523

PATIENT
  Age: 64 Year
  Sex: Male

DRUGS (3)
  1. ACTOS [Suspect]
     Indication: DIABETES MELLITUS NON-INSULIN-DEPENDENT
     Dosage: PER ORAL
     Route: 048
  2. GLIPIZIDE [Concomitant]
  3. LISINOPRIL [Concomitant]

REACTIONS (2)
  - ACUTE PULMONARY OEDEMA [None]
  - DRUG INTOLERANCE [None]
